FAERS Safety Report 9413252 (Version 1)
Quarter: 2013Q2

REPORT INFORMATION
  Report Type: Spontaneous
  Country: JP (occurrence: None)
  Receive Date: 20130617
  Receipt Date: 20130617
  Transmission Date: 20140414
  Serious: Yes (Hospitalization)
  Sender: FDA-Public Use
  Company Number: 2013S1001170

PATIENT
  Age: 79 Year
  Sex: Female
  Weight: 44.9 kg

DRUGS (7)
  1. LIVALO (PITAVASTATIN) TABLETS 2 MG [Suspect]
     Indication: HYPERCHOLESTEROLAEMIA
     Route: 048
     Dates: start: 20130322, end: 20130401
  2. ELDECALCITOL [Concomitant]
  3. CALCIUM [Concomitant]
  4. AROMASIN [Concomitant]
  5. PREDNISOLONE [Concomitant]
  6. TAKEPRON [Concomitant]
  7. BAKTAR [Concomitant]

REACTIONS (1)
  - Agranulocytosis [None]
